FAERS Safety Report 23756538 (Version 1)
Quarter: 2024Q2

REPORT INFORMATION
  Report Type: Spontaneous
  Country: US (occurrence: US)
  Receive Date: 20240418
  Receipt Date: 20240418
  Transmission Date: 20240716
  Serious: No
  Sender: FDA-Public Use
  Company Number: US-HALEON-2166733

PATIENT

DRUGS (1)
  1. NICORETTE MINT [Suspect]
     Active Substance: NICOTINE
     Dosage: 2 EVERY HORS FOR 8 YEARS

REACTIONS (2)
  - Incorrect dose administered [Unknown]
  - Product use issue [Unknown]
